FAERS Safety Report 8194193-0 (Version None)
Quarter: 2012Q1

REPORT INFORMATION
  Report Type: 
  Country: None (occurrence: None)
  Receive Date: 20120308
  Receipt Date: 20120224
  Transmission Date: 20120608
  Serious: Yes (Other)
  Sender: FDA-Public Use
  Company Number: JP-ROCHE-1043800

PATIENT
  Sex: Female

DRUGS (13)
  1. MIRCERA [Suspect]
     Route: 042
     Dates: start: 20120110, end: 20120110
  2. LANSOPRAZOLE [Concomitant]
     Indication: GASTROOESOPHAGEAL REFLUX DISEASE
     Dosage: TAPIZOL
     Route: 048
  3. DIART [Concomitant]
     Dosage: 30-60MG
     Route: 048
  4. MIRCERA [Suspect]
     Indication: NEPHROGENIC ANAEMIA
     Route: 042
     Dates: start: 20110913, end: 20111011
  5. MIRCERA [Suspect]
     Route: 042
     Dates: start: 20111115, end: 20111213
  6. ASPIRIN [Concomitant]
     Route: 048
  7. DOXAZOSIN MESYLATE [Concomitant]
     Indication: HYPERTENSION
     Dosage: CARBADOGEN
     Route: 048
  8. MIRCERA [Suspect]
     Route: 042
     Dates: start: 20120214, end: 20120214
  9. AMEZINIUM METILSULFATE [Concomitant]
     Dosage: AT HD; ACOMIC
     Route: 048
     Dates: end: 20110330
  10. PENLES [Concomitant]
     Indication: PROPHYLAXIS
     Dosage: AT HD
     Route: 061
  11. ZOLPIDEM [Concomitant]
     Indication: INSOMNIA
     Route: 048
  12. CALCIUM CARBONATE [Concomitant]
     Indication: HYPERPHOSPHATAEMIA
     Route: 048
     Dates: start: 20110415
  13. AMEZINIUM METILSULFATE [Concomitant]
     Dosage: AT HD
     Route: 048
     Dates: start: 20110402

REACTIONS (2)
  - ENTEROCOLITIS [None]
  - CEREBRAL HAEMORRHAGE [None]
